FAERS Safety Report 11172026 (Version 1)
Quarter: 2015Q2

REPORT INFORMATION
  Report Type: Report from Study
  Country: US (occurrence: US)
  Receive Date: 20150608
  Receipt Date: 20150608
  Transmission Date: 20150821
  Serious: Yes (Hospitalization)
  Sender: FDA-Public Use
  Company Number: US-CELGENEUS-USA-2015056302

PATIENT
  Age: 81 Year
  Sex: Male
  Weight: 67.65 kg

DRUGS (5)
  1. GEMCITABINE [Suspect]
     Active Substance: GEMCITABINE\GEMCITABINE HYDROCHLORIDE
     Indication: PANCREATIC CARCINOMA METASTATIC
     Route: 041
     Dates: start: 20150512
  2. GEMCITABINE [Suspect]
     Active Substance: GEMCITABINE\GEMCITABINE HYDROCHLORIDE
     Route: 041
     Dates: end: 20150518
  3. NECUPARANIB [Suspect]
     Active Substance: NECUPARANIB
     Indication: PANCREATIC CARCINOMA METASTATIC
     Route: 041
     Dates: start: 20140512, end: 20150521
  4. ABRAXANE [Suspect]
     Active Substance: PACLITAXEL
     Route: 041
     Dates: end: 20150518
  5. ABRAXANE [Suspect]
     Active Substance: PACLITAXEL
     Indication: PANCREATIC CARCINOMA METASTATIC
     Route: 041
     Dates: start: 20140512

REACTIONS (1)
  - Pyrexia [Unknown]

NARRATIVE: CASE EVENT DATE: 20150520
